FAERS Safety Report 16696729 (Version 1)
Quarter: 2019Q3

REPORT INFORMATION
  Report Type: Other
  Country: IT (occurrence: IT)
  Receive Date: 20190813
  Receipt Date: 20190813
  Transmission Date: 20191004
  Serious: Yes (Other)
  Sender: FDA-Public Use
  Company Number: IT-STRIDES ARCOLAB LIMITED-2019SP007635

PATIENT
  Age: 45 Year
  Sex: Male

DRUGS (4)
  1. UNIDROX [Suspect]
     Active Substance: PRULIFLOXACIN
     Indication: ORCHITIS
     Dosage: UNK
     Route: 048
     Dates: start: 20180821
  2. DUTASTERIDE. [Suspect]
     Active Substance: DUTASTERIDE
     Indication: ORCHITIS
     Dosage: UNK, TABLET
     Route: 048
  3. CORTISONE [Suspect]
     Active Substance: CORTISONE
     Indication: ORCHITIS
     Dosage: UNK
     Route: 065
  4. AMOXICILLIN TRIHYDRATE AND POTASSIUM CLAVULAN [Suspect]
     Active Substance: AMOXICILLIN\CLAVULANATE POTASSIUM
     Indication: ORCHITIS
     Dosage: UNK
     Route: 065

REACTIONS (4)
  - Gait disturbance [Not Recovered/Not Resolved]
  - Off label use [Unknown]
  - Plantar fasciitis [Not Recovered/Not Resolved]
  - Tendonitis [Not Recovered/Not Resolved]
